FAERS Safety Report 5123351-4 (Version None)
Quarter: 2006Q4

REPORT INFORMATION
  Report Type: 
  Country: None (occurrence: None)
  Receive Date: 20061005
  Receipt Date: 20060922
  Transmission Date: 20070319
  Serious: Yes (Hospitalization)
  Sender: FDA-Public Use
  Company Number: MEDI-0004502

PATIENT
  Age: 10 Month
  Sex: 0

DRUGS (2)
  1. SYNAGIS [Suspect]
     Indication: ANTIVIRAL PROPHYLAXIS
     Dosage: 100 MG, INTRAMUSCULAR
     Route: 030
     Dates: start: 20060103, end: 20060103
  2. SYNAGIS [Suspect]
     Indication: ANTIVIRAL PROPHYLAXIS
     Dosage: 100 MG, INTRAMUSCULAR
     Route: 030
     Dates: start: 20060226, end: 20060226

REACTIONS (6)
  - ASTHMA [None]
  - BRONCHIOLITIS [None]
  - BRONCHITIS [None]
  - GASTROENTERITIS [None]
  - INFLUENZA [None]
  - RESPIRATORY SYNCYTIAL VIRUS INFECTION [None]
